FAERS Safety Report 7798359-0 (Version None)
Quarter: 2011Q4

REPORT INFORMATION
  Report Type: 
  Country: None (occurrence: None)
  Receive Date: 20111005
  Receipt Date: 20110215
  Transmission Date: 20120403
  Serious: No
  Sender: FDA-Public Use
  Company Number: US-BAYER-2011-015019

PATIENT
  Sex: Female

DRUGS (2)
  1. LUPRON [Suspect]
     Dosage: 20 MG, QD
     Dates: start: 20100913
  2. CIPRO [Suspect]
     Dosage: UNK
     Dates: start: 20100912

REACTIONS (7)
  - HEADACHE [None]
  - FEELING ABNORMAL [None]
  - ABDOMINAL DISCOMFORT [None]
  - FATIGUE [None]
  - NAUSEA [None]
  - HOT FLUSH [None]
  - MIGRAINE [None]
